FAERS Safety Report 4535240-4 (Version None)
Quarter: 2004Q4

REPORT INFORMATION
  Report Type: 
  Country: None (occurrence: None)
  Receive Date: 20041214
  Receipt Date: 20040817
  Transmission Date: 20050328
  Serious: Yes (Other)
  Sender: FDA-Public Use
  Company Number: 2004229348US

PATIENT
  Sex: Male

DRUGS (12)
  1. BEXTRA [Suspect]
     Indication: PAIN
     Dosage: 10 MG, QD, ORAL
     Route: 048
     Dates: start: 20040816
  2. GABITRIL [Concomitant]
  3. CIPRO [Concomitant]
  4. PROPRANOLOL [Concomitant]
  5. NIZATIDINE [Concomitant]
  6. CLONAZEPAM [Concomitant]
  7. TRICOR [Concomitant]
  8. PRAVACHOL [Concomitant]
  9. COMBIVENT [Concomitant]
  10. THEOPHYLLINE [Concomitant]
  11. ZYRTEC [Concomitant]
  12. DOXAZOSIN MESYLATE [Concomitant]

REACTIONS (2)
  - BLOOD URINE PRESENT [None]
  - COUGH [None]
